FAERS Safety Report 17095576 (Version 1)
Quarter: 2019Q4

REPORT INFORMATION
  Report Type: Spontaneous
  Country: SE (occurrence: SE)
  Receive Date: 20191201
  Receipt Date: 20191201
  Transmission Date: 20200122
  Serious: Yes (Hospitalization)
  Sender: FDA-Public Use
  Company Number: SE-DEXPHARM-20191050

PATIENT
  Age: 73 Year
  Sex: Male
  Weight: 89 kg

DRUGS (6)
  1. ATORVASTATIN EBB 40 MG FILMDRAGERAD TABLETT [Concomitant]
  2. ISONOVA 60 MG DEPOTTABLETT [Suspect]
     Active Substance: ISOSORBIDE MONONITRATE
     Indication: ANGINA PECTORIS
     Dates: start: 20191002
  3. TROMBYL 75 MG TABLETT [Concomitant]
     Active Substance: ASPIRIN
  4. METOPROLOL SANDOZ 50 MG DEPOTTABLETT [Concomitant]
  5. CANDESARTAN SANDOZ 8 MG TABLETT [Concomitant]
  6. BRILIQUE 90 MG FILMDRAGERAD TABLETT [Concomitant]
     Active Substance: TICAGRELOR

REACTIONS (1)
  - Angina unstable [Recovered/Resolved]

NARRATIVE: CASE EVENT DATE: 20191006
